FAERS Safety Report 11337116 (Version 1)
Quarter: 2015Q3

REPORT INFORMATION
  Report Type: Spontaneous
  Country: IN (occurrence: IN)
  Receive Date: 20150804
  Receipt Date: 20150804
  Transmission Date: 20151125
  Serious: Yes (Other)
  Sender: FDA-Public Use
  Company Number: PHHY2015IN090998

PATIENT
  Age: 13 Year
  Sex: Female

DRUGS (2)
  1. VALPROATE SODIUM. [Suspect]
     Active Substance: VALPROATE SODIUM
     Indication: MYOCLONUS
     Dosage: 500 MG, BID
     Route: 065
  2. ZONISAMIDE. [Concomitant]
     Active Substance: ZONISAMIDE
     Indication: MYOCLONUS
     Dosage: 50 MG, BID
     Route: 065

REACTIONS (8)
  - Reading disorder [Recovering/Resolving]
  - Headache [Recovering/Resolving]
  - Balance disorder [Recovering/Resolving]
  - Myoclonic epilepsy and ragged-red fibres [Recovering/Resolving]
  - Performance status decreased [Recovering/Resolving]
  - Condition aggravated [Recovering/Resolving]
  - Vision blurred [Recovering/Resolving]
  - Deafness [Recovering/Resolving]
